FAERS Safety Report 14233537 (Version 1)
Quarter: 2017Q4

REPORT INFORMATION
  Report Type: Spontaneous
  Country: JP (occurrence: JP)
  Receive Date: 20171129
  Receipt Date: 20171129
  Transmission Date: 20180321
  Serious: Yes (Other)
  Sender: FDA-Public Use
  Company Number: JP-MYLANLABS-2017M1074625

PATIENT
  Age: 66 Year
  Sex: Male

DRUGS (9)
  1. PREDNISONE. [Suspect]
     Active Substance: PREDNISONE
     Indication: PERIPHERAL T-CELL LYMPHOMA UNSPECIFIED
     Dosage: CHOP CHEMOTHERAPY, PREDNISONE 60 MG/M2 ON DAYS 1-5
     Route: 065
  2. CYCLOPHOSPHAMIDE. [Suspect]
     Active Substance: CYCLOPHOSPHAMIDE
     Dosage: CHASE CHEMOTHERAPY, CYCLOPHOSPHAMIDE 1200 MG/M2 ON DAY 1
     Route: 065
  3. CYCLOPHOSPHAMIDE. [Suspect]
     Active Substance: CYCLOPHOSPHAMIDE
     Indication: PERIPHERAL T-CELL LYMPHOMA UNSPECIFIED
     Dosage: CHOP CHEMOTHERAPY, CYCLOPHOSPHAMIDE 750 MG/M2 ON DAY 1
     Route: 065
  4. ETOPOSIDE. [Suspect]
     Active Substance: ETOPOSIDE
     Indication: PERIPHERAL T-CELL LYMPHOMA UNSPECIFIED
     Dosage: CHASE CHEMOTHERAPY, ETOPOSIDE 100 MG/M2 ON DAYS 1-3
     Route: 065
  5. CYTARABINE. [Suspect]
     Active Substance: CYTARABINE
     Indication: PERIPHERAL T-CELL LYMPHOMA UNSPECIFIED
     Dosage: CHASE CHEMOTHERAPY, CYTARABINE 1000 MG/M2 ON DAY 2 AND 3
     Route: 065
  6. DEXAMETHASONE. [Suspect]
     Active Substance: DEXAMETHASONE
     Indication: PERIPHERAL T-CELL LYMPHOMA UNSPECIFIED
     Dosage: CHASE CHEMOTHERAPY, DEXAMETHASONE 40 MG/BODY ON DAYS 1-3
     Route: 065
  7. VINCRISTINE [Suspect]
     Active Substance: VINCRISTINE
     Indication: PERIPHERAL T-CELL LYMPHOMA UNSPECIFIED
     Dosage: CHOP CHEMOTHERAPY, VINCRISTINE 1.4 MG/M2 ON DAY 1
     Route: 065
  8. DOXORUBICIN [Suspect]
     Active Substance: DOXORUBICIN
     Indication: PERIPHERAL T-CELL LYMPHOMA UNSPECIFIED
     Dosage: CHOP CHEMOTHERAPY, DOXORUBICIN 50 MG/M2 ON DAY 1
     Route: 065
  9. MOGAMULIZUMAB [Concomitant]
     Active Substance: MOGAMULIZUMAB
     Indication: PERIPHERAL T-CELL LYMPHOMA UNSPECIFIED
     Dosage: MOGAMULIZUMAB 1 MG/KG EACH WEEK
     Route: 065

REACTIONS (5)
  - Epstein-Barr virus infection [Unknown]
  - Central nervous system lymphoma [Unknown]
  - Paralysis [Unknown]
  - Diffuse large B-cell lymphoma [Unknown]
  - Coma [Not Recovered/Not Resolved]
